FAERS Safety Report 19036643 (Version 2)
Quarter: 2025Q3

REPORT INFORMATION
  Report Type: Spontaneous
  Country: US (occurrence: US)
  Receive Date: 20210322
  Receipt Date: 20250717
  Transmission Date: 20251020
  Serious: Yes (Death, Hospitalization, Other)
  Sender: Kenvue
  Company Number: US-JNJFOC-20210328235

PATIENT
  Age: 63 Year
  Sex: Female

DRUGS (5)
  1. ACETAMINOPHEN [Suspect]
     Active Substance: ACETAMINOPHEN
     Indication: Product used for unknown indication
     Route: 048
  2. DIPHENHYDRAMINE HYDROCHLORIDE [Suspect]
     Active Substance: DIPHENHYDRAMINE HYDROCHLORIDE
     Indication: Product used for unknown indication
     Route: 048
  3. METFORMIN [Suspect]
     Active Substance: METFORMIN HYDROCHLORIDE
     Indication: Product used for unknown indication
     Route: 048
  4. BENZONATATE [Suspect]
     Active Substance: BENZONATATE
     Indication: Product used for unknown indication
     Route: 048
  5. LINAGLIPTIN [Suspect]
     Active Substance: LINAGLIPTIN
     Indication: Product used for unknown indication
     Route: 048

REACTIONS (6)
  - Toxicity to various agents [Fatal]
  - Renal failure [Fatal]
  - Hepatic failure [Fatal]
  - Metabolic acidosis [Fatal]
  - Depressed level of consciousness [Fatal]
  - Electrocardiogram abnormal [Fatal]
